FAERS Safety Report 6379769-5 (Version None)
Quarter: 2009Q3

REPORT INFORMATION
  Report Type: 
  Country: None (occurrence: None)
  Receive Date: 20090924
  Receipt Date: 20090924
  Transmission Date: 20100115
  Serious: Yes (Disabling)
  Sender: FDA-Public Use
  Company Number: None

PATIENT
  Age: 65 Year
  Sex: Male
  Weight: 77.1115 kg

DRUGS (1)
  1. HYALURONIDASE [Suspect]
     Indication: PTERYGIUM
     Dosage: 1CC 1 DOSE RETROBULBAR, 1 TIME USE
     Route: 056
     Dates: start: 20090915, end: 20090915

REACTIONS (6)
  - CELLULITIS ORBITAL [None]
  - ERYTHEMA [None]
  - PAIN [None]
  - PAROPHTHALMIA [None]
  - SWELLING [None]
  - VISUAL ACUITY REDUCED [None]
